FAERS Safety Report 8933629 (Version 1)
Quarter: 2012Q4

REPORT INFORMATION
  Report Type: 
  Country: FR (occurrence: FR)
  Receive Date: 20121129
  Receipt Date: 20121129
  Transmission Date: 20130627
  Serious: Yes (Other)
  Sender: FDA-Public Use
  Company Number: FR-SANOFI-AVENTIS-2012SA086172

PATIENT
  Age: 63 Year
  Sex: Male

DRUGS (14)
  1. MYCOPHENOLATE MOFETIL [Suspect]
     Indication: IMMUNOSUPPRESSION
     Route: 065
  2. MYCOPHENOLATE MOFETIL [Suspect]
     Indication: IMMUNOSUPPRESSION
     Route: 065
  3. RIFAMPIN [Interacting]
     Indication: PULMONARY TUBERCULOSIS
     Route: 065
  4. EVEROLIMUS [Interacting]
     Indication: IMMUNOSUPPRESSION
     Route: 065
  5. EVEROLIMUS [Interacting]
     Indication: IMMUNOSUPPRESSION
     Route: 065
  6. EVEROLIMUS [Interacting]
     Indication: IMMUNOSUPPRESSION
     Route: 065
  7. SORAFENIB [Suspect]
     Indication: LIVER CARCINOMA
     Route: 065
     Dates: start: 200902
  8. CORTICOSTEROIDS [Concomitant]
     Indication: IMMUNOSUPPRESSION
  9. THERAPEUTIC RADIOPHARMACEUTICALS [Concomitant]
     Indication: LIVER CARCINOMA
     Dates: start: 200902
  10. OSELTAMIVIR [Concomitant]
  11. ISONIAZID [Concomitant]
     Indication: TUBERCULOSIS
  12. PYRAZINAMIDE [Concomitant]
     Indication: TUBERCULOSIS
  13. ETHAMBUTOL [Concomitant]
     Indication: TUBERCULOSIS
  14. RIFABUTIN [Concomitant]
     Indication: IMMUNOSUPPRESSION

REACTIONS (3)
  - Pancytopenia [Unknown]
  - Pneumonia [Unknown]
  - Drug interaction [Unknown]
